FAERS Safety Report 9415074 (Version 1)
Quarter: 2013Q3

REPORT INFORMATION
  Report Type: Spontaneous
  Country: MX (occurrence: MX)
  Receive Date: 20130723
  Receipt Date: 20130723
  Transmission Date: 20140515
  Serious: Yes (Other)
  Sender: FDA-Public Use
  Company Number: PHHY2013MX075714

PATIENT
  Age: 65 Year
  Sex: Male

DRUGS (8)
  1. STALEVO [Suspect]
     Indication: PARKINSON^S DISEASE
     Dosage: 3 DF (200MG/100MG/25MG)
     Route: 048
  2. RIVOTRIL [Concomitant]
     Indication: ANXIETY
     Dosage: 1 DF, UNK
     Dates: start: 2008
  3. AKINETON//BIPERIDEN [Concomitant]
     Indication: BLOOD DISORDER
     Dosage: 2 DF, DAILY
     Dates: start: 201302
  4. LOBIVON [Concomitant]
     Indication: BLOOD PRESSURE
     Dosage: 0.5 DF, IN THE MORNING
     Dates: start: 201304
  5. ANAPSIQUE [Concomitant]
     Indication: PARKINSON^S DISEASE
     Dosage: 0.25 DF, UNK
     Dates: start: 201304
  6. GABANTIN [Concomitant]
     Dosage: 2 DF, UNK
     Dates: start: 201304
  7. VITAMIN E [Concomitant]
     Indication: MEMORY IMPAIRMENT
     Dosage: 1 DF, DAILY
     Dates: start: 201304
  8. ASPIRIN PROTECT [Concomitant]
     Indication: PROPHYLAXIS
     Dosage: 1 DF, DAILY
     Dates: start: 2003

REACTIONS (11)
  - Speech disorder [Not Recovered/Not Resolved]
  - Coordination abnormal [Not Recovered/Not Resolved]
  - Choking [Not Recovered/Not Resolved]
  - Blood cholesterol increased [Not Recovered/Not Resolved]
  - Blood triglycerides increased [Not Recovered/Not Resolved]
  - Prostatic disorder [Unknown]
  - Fall [Not Recovered/Not Resolved]
  - Hypokinesia [Not Recovered/Not Resolved]
  - Dyspnoea [Unknown]
  - Dysphagia [Not Recovered/Not Resolved]
  - Cough [Not Recovered/Not Resolved]
